FAERS Safety Report 6635041-7 (Version None)
Quarter: 2010Q1

REPORT INFORMATION
  Report Type: 
  Country: None (occurrence: None)
  Receive Date: 20100315
  Receipt Date: 20100301
  Transmission Date: 20100710
  Serious: Yes (Other)
  Sender: FDA-Public Use
  Company Number: IE-MYLANLABS-2010S1003300

PATIENT
  Age: 43 Year
  Sex: Male

DRUGS (3)
  1. FENTANYL [Suspect]
     Indication: ABDOMINAL PAIN
     Route: 062
  2. OXYCODONE [Suspect]
     Indication: ABDOMINAL PAIN
     Route: 065
  3. OXYCODONE [Suspect]
     Route: 065

REACTIONS (3)
  - CONSTIPATION [None]
  - DISTURBANCE IN ATTENTION [None]
  - SOMNOLENCE [None]
